FAERS Safety Report 20207666 (Version 2)
Quarter: 2022Q1

REPORT INFORMATION
  Report Type: Spontaneous
  Country: US (occurrence: US)
  Receive Date: 20211220
  Receipt Date: 20220117
  Transmission Date: 20220423
  Serious: Yes (Other)
  Sender: FDA-Public Use
  Company Number: US-009507513-2112USA005492

PATIENT
  Age: 17 Year
  Sex: Female

DRUGS (2)
  1. WELIREG [Suspect]
     Active Substance: BELZUTIFAN
     Indication: Paraganglion neoplasm
     Dosage: 120 MILLIGRAM, DAILY
     Route: 048
  2. WELIREG [Suspect]
     Active Substance: BELZUTIFAN
     Indication: Polycythaemia

REACTIONS (16)
  - Hyperkalaemia [Unknown]
  - Electrocardiogram QT prolonged [Unknown]
  - Lymphocyte count decreased [Unknown]
  - White blood cell count decreased [Unknown]
  - Neutrophil count decreased [Unknown]
  - Eosinophilia [Unknown]
  - Rash maculo-papular [Unknown]
  - Dry skin [Unknown]
  - Hypotension [Unknown]
  - Sinus tachycardia [Unknown]
  - Proteinuria [Unknown]
  - Haematuria [Unknown]
  - Hypertension [Unknown]
  - Weight increased [Unknown]
  - Anaemia [Recovering/Resolving]
  - Product use in unapproved indication [Unknown]
